FAERS Safety Report 16263569 (Version 4)
Quarter: 2021Q3

REPORT INFORMATION
  Report Type: Report from Study
  Country: ES (occurrence: ES)
  Receive Date: 20190502
  Receipt Date: 20210810
  Transmission Date: 20211014
  Serious: Yes (Life-Threatening, Hospitalization)
  Sender: FDA-Public Use
  Company Number: ES-ROCHE-2309985

PATIENT
  Age: 47 Year
  Sex: Female
  Weight: 50.6 kg

DRUGS (2)
  1. ATEZOLIZUMAB. [Suspect]
     Active Substance: ATEZOLIZUMAB
     Indication: BREAST CANCER
     Route: 041
     Dates: start: 20190404, end: 20190404
  2. PELAREOREP [Suspect]
     Active Substance: PELAREOREP
     Indication: BREAST CANCER
     Dosage: REOVIRUS SEROTYPE 3 DEARING STRAIN) SOLUTION (EXCEPT SYRUP)?DOSE: 4.5 X 10E10 TCID50
     Route: 042
     Dates: start: 20190402, end: 20190410

REACTIONS (2)
  - Pneumonitis [Recovered/Resolved]
  - Autoimmune disorder [Recovered/Resolved with Sequelae]

NARRATIVE: CASE EVENT DATE: 20190419
